FAERS Safety Report 5092535-6 (Version None)
Quarter: 2006Q3

REPORT INFORMATION
  Report Type: 
  Country: None (occurrence: None)
  Receive Date: 20060830
  Receipt Date: 20060815
  Transmission Date: 20061208
  Serious: Yes (Hospitalization, Other)
  Sender: FDA-Public Use
  Company Number: PHEH2006US10463

PATIENT
  Sex: Male
  Weight: 53.514 kg

DRUGS (18)
  1. EXJADE [Suspect]
     Dosage: UNK, QD
     Route: 048
     Dates: start: 20060421, end: 20060731
  2. CELLCEPT [Concomitant]
     Dosage: 250 MG, BID
  3. LIPITOR                                 /NET/ [Concomitant]
     Dosage: 10 MG, QD
  4. COLCHICINE [Concomitant]
     Dosage: 0.6 MG MWF
  5. BACTRIM DS [Concomitant]
     Dosage: ONE TAB MWF
  6. HYDROXYUREA [Concomitant]
     Dosage: 1 G, QD
  7. CARTIA XT [Concomitant]
     Dosage: 120 MG, QD
  8. PROGRAF [Concomitant]
     Dosage: 1MG THREE TABS DAILY
  9. PROGRAF [Concomitant]
     Dosage: 0.5MG, ONE TAB BID
  10. PROPAFENONE HCL [Concomitant]
     Dosage: 150MG TABS , THREE DAILY
  11. SODIUM BICARBONATE [Concomitant]
     Dosage: 1200 MG, BID
  12. ASPIRIN [Concomitant]
     Dosage: 81 MG, QD
  13. OXYCODONE HCL [Concomitant]
     Dosage: 5 MG, Q4H
     Route: 048
  14. GANCICLOVIR [Concomitant]
     Dosage: 500 MG, QD
  15. CIPRO [Concomitant]
     Dosage: 400 MG, QD
  16. LASIX [Concomitant]
     Dosage: 40 MG, BID
  17. LOPRESSOR [Concomitant]
     Dosage: 50 MG, BID
  18. EPOGEN [Concomitant]
     Dosage: 20K UNIT MWF

REACTIONS (4)
  - ARTHRALGIA [None]
  - HYPERKALAEMIA [None]
  - PLATELET COUNT INCREASED [None]
  - WEIGHT DECREASED [None]
